FAERS Safety Report 23121822 (Version 2)
Quarter: 2023Q4

REPORT INFORMATION
  Report Type: Spontaneous
  Country: PS (occurrence: PS)
  Receive Date: 20231030
  Receipt Date: 20231120
  Transmission Date: 20240109
  Serious: Yes (Other)
  Sender: FDA-Public Use
  Company Number: PS-JNJFOC-20231061236

PATIENT
  Age: 47 Year
  Sex: Female
  Weight: 120 kg

DRUGS (2)
  1. OPSUMIT [Suspect]
     Active Substance: MACITENTAN
     Indication: Pulmonary arterial hypertension
     Route: 048
     Dates: start: 20231001
  2. DILTIAZEM [Concomitant]
     Active Substance: DILTIAZEM

REACTIONS (4)
  - Oxygen saturation decreased [Recovered/Resolved]
  - Dyspnoea [Recovered/Resolved]
  - Tachycardia [Recovered/Resolved]
  - Oedema peripheral [Recovered/Resolved]
